FAERS Safety Report 24539753 (Version 3)
Quarter: 2024Q4

REPORT INFORMATION
  Report Type: Spontaneous
  Country: JP (occurrence: JP)
  Receive Date: 20241023
  Receipt Date: 20241031
  Transmission Date: 20250114
  Serious: Yes (Life-Threatening, Hospitalization, Other)
  Sender: PFIZER
  Company Number: JP-PFIZER INC-202400281097

PATIENT
  Age: 9 Decade
  Sex: Female
  Weight: 56 kg

DRUGS (6)
  1. GEMCITABINE HYDROCHLORIDE [Suspect]
     Active Substance: GEMCITABINE HYDROCHLORIDE
     Indication: Biliary cancer metastatic
     Dosage: ONCE A WEEK FOR THREE CONSECUTIVE WEEKS FOLLOWED BY ONE WEEK OFF (16000 MG/M2 CUMULATIVE DOSE)
  2. AMLODIPINE [Concomitant]
     Active Substance: AMLODIPINE BESYLATE
     Route: 048
  3. CANDESARTAN [Concomitant]
     Active Substance: CANDESARTAN
     Route: 048
  4. LANSOPRAZOLE [Concomitant]
     Active Substance: LANSOPRAZOLE
     Route: 048
  5. THEOPHYLLINE [Concomitant]
     Active Substance: THEOPHYLLINE
  6. MONTELUKAST [Concomitant]
     Active Substance: MONTELUKAST
     Route: 048

REACTIONS (1)
  - Thrombotic microangiopathy [Recovering/Resolving]
